FAERS Safety Report 5345323-7 (Version None)
Quarter: 2007Q2

REPORT INFORMATION
  Report Type: 
  Country: None (occurrence: None)
  Receive Date: 20070601
  Receipt Date: 20070601
  Transmission Date: 20071010
  Serious: Yes (Other)
  Sender: FDA-Public Use
  Company Number: None

PATIENT
  Sex: Female

DRUGS (1)
  1. DR. SCHOLL'S CORN REMOVERS [Suspect]
     Indication: DRUG USE FOR UNKNOWN INDICATION
     Dosage: TOP
     Route: 061

REACTIONS (1)
  - THROMBOSIS [None]
